FAERS Safety Report 5487105-1 (Version None)
Quarter: 2007Q4

REPORT INFORMATION
  Report Type: 
  Country: None (occurrence: None)
  Receive Date: 20071016
  Receipt Date: 20040809
  Transmission Date: 20080405
  Serious: Yes (Hospitalization)
  Sender: FDA-Public Use
  Company Number: MY-ROCHE-523505

PATIENT
  Age: 45 Year
  Sex: Female

DRUGS (1)
  1. FANSIDAR [Suspect]
     Indication: MALARIA
     Route: 048
     Dates: start: 20040725, end: 20070729

REACTIONS (4)
  - DIZZINESS [None]
  - HEADACHE [None]
  - OVERDOSE [None]
  - VOMITING [None]
